FAERS Safety Report 19685094 (Version 3)
Quarter: 2021Q3

REPORT INFORMATION
  Report Type: Spontaneous
  Country: US (occurrence: US)
  Receive Date: 20210811
  Receipt Date: 20210913
  Transmission Date: 20211014
  Serious: No
  Sender: FDA-Public Use
  Company Number: US-ALKERMES INC.-ALK-2021-004097

PATIENT
  Age: 47 Year
  Sex: Male

DRUGS (3)
  1. VIVITROL [Suspect]
     Active Substance: NALTREXONE
     Indication: ALCOHOLISM
     Dosage: 380 MILLIGRAM, QMO
     Route: 030
     Dates: start: 20210903
  2. VIVITROL [Suspect]
     Active Substance: NALTREXONE
     Dosage: 380 MILLIGRAM, QMO
     Route: 030
     Dates: start: 20210731, end: 20210731
  3. NITROUS OXIDE. [Concomitant]
     Active Substance: NITROUS OXIDE
     Indication: DENTAL CARE
     Dosage: UNK UNK, ONE TIME DOSE
     Route: 065
     Dates: start: 2021, end: 2021

REACTIONS (18)
  - Alcoholism [Not Recovered/Not Resolved]
  - Decreased appetite [Unknown]
  - Injury [Unknown]
  - Arthralgia [Unknown]
  - Muscle spasms [Not Recovered/Not Resolved]
  - Night sweats [Not Recovered/Not Resolved]
  - Injection site mass [Not Recovered/Not Resolved]
  - Erythema [Unknown]
  - Dizziness [Unknown]
  - Proctalgia [Recovered/Resolved]
  - Injection site nerve damage [Unknown]
  - Diarrhoea [Unknown]
  - Injection site reaction [Not Recovered/Not Resolved]
  - Headache [Unknown]
  - Dental operation [Unknown]
  - Weight decreased [Unknown]
  - Pain [Not Recovered/Not Resolved]
  - Myalgia [Not Recovered/Not Resolved]

NARRATIVE: CASE EVENT DATE: 2021
